FAERS Safety Report 9877134 (Version 1)
Quarter: 2014Q1

REPORT INFORMATION
  Report Type: Spontaneous
  Country: US (occurrence: US)
  Receive Date: 20140206
  Receipt Date: 20140206
  Transmission Date: 20141002
  Serious: Yes (Death)
  Sender: FDA-Public Use
  Company Number: US-009507513-1401USA014542

PATIENT
  Sex: Male

DRUGS (2)
  1. ZOLINZA [Suspect]
     Indication: MALIGNANT MELANOMA
     Dosage: 100 MG, UNK
     Route: 048
  2. VOTRIENT [Suspect]
     Indication: MALIGNANT MELANOMA
     Dosage: 200 MG, UNK
     Route: 048
     Dates: start: 20130712

REACTIONS (1)
  - Death [Fatal]
